FAERS Safety Report 6374393-2 (Version None)
Quarter: 2009Q3

REPORT INFORMATION
  Report Type: 
  Country: None (occurrence: None)
  Receive Date: 20090921
  Receipt Date: 20090908
  Transmission Date: 20100115
  Serious: Yes (Hospitalization, Other)
  Sender: FDA-Public Use
  Company Number: 231104K09USA

PATIENT
  Age: 40 Year
  Sex: Female

DRUGS (1)
  1. REBIF [Suspect]
     Indication: MULTIPLE SCLEROSIS
     Dates: start: 20080729, end: 20081228

REACTIONS (2)
  - HEPATIC ENZYME INCREASED [None]
  - SPINAL HAEMANGIOMA [None]
